FAERS Safety Report 17601483 (Version 1)
Quarter: 2020Q1

REPORT INFORMATION
  Report Type: Report from Study
  Country: HU (occurrence: HU)
  Receive Date: 20200331
  Receipt Date: 20200331
  Transmission Date: 20200409
  Serious: Yes (Death, Other)
  Sender: FDA-Public Use
  Company Number: HU-ACTELION-A-CH2020-203542

PATIENT
  Age: 73 Year
  Sex: Female

DRUGS (16)
  1. TREPROSTINIL. [Concomitant]
     Active Substance: TREPROSTINIL
  2. CORDARONE [Concomitant]
     Active Substance: AMIODARONE HYDROCHLORIDE
  3. INSULIN [Concomitant]
     Active Substance: INSULIN NOS
  4. OPSUMIT [Suspect]
     Active Substance: MACITENTAN
     Indication: PULMONARY ARTERIAL HYPERTENSION
     Dosage: 10 MG, OD
     Route: 048
     Dates: start: 201706, end: 20200320
  5. KALDYUM [Concomitant]
     Active Substance: POTASSIUM CHLORIDE
  6. MEDROL [Concomitant]
     Active Substance: METHYLPREDNISOLONE
  7. ROSUTEC [Concomitant]
  8. FERROGRAD FOLIC [Concomitant]
  9. SPIRIVA [Concomitant]
     Active Substance: TIOTROPIUM BROMIDE MONOHYDRATE
  10. FRONTIN [Concomitant]
     Active Substance: ALPRAZOLAM
  11. XARELTO [Concomitant]
     Active Substance: RIVAROXABAN
  12. PANTOPRAZOL [Concomitant]
     Active Substance: PANTOPRAZOLE SODIUM
  13. NEBIVOLOL. [Concomitant]
     Active Substance: NEBIVOLOL
  14. EGIFILIN [Concomitant]
  15. FUROSEMID [Concomitant]
     Active Substance: FUROSEMIDE
  16. SYMBICORT [Concomitant]
     Active Substance: BUDESONIDE\FORMOTEROL FUMARATE DIHYDRATE

REACTIONS (3)
  - Cardiac failure [Unknown]
  - Acute kidney injury [Unknown]
  - Death [Fatal]

NARRATIVE: CASE EVENT DATE: 20200320
